FAERS Safety Report 13988101 (Version 4)
Quarter: 2018Q3

REPORT INFORMATION
  Report Type: Report from Study
  Country: US (occurrence: US)
  Receive Date: 20170919
  Receipt Date: 20180904
  Transmission Date: 20181010
  Serious: Yes (Hospitalization)
  Sender: FDA-Public Use
  Company Number: US-EISAI MEDICAL RESEARCH-EC-2017-031205

PATIENT
  Age: 74 Year
  Sex: Male
  Weight: 87 kg

DRUGS (5)
  1. LENVATINIB [Suspect]
     Active Substance: LENVATINIB
     Dates: start: 20170802, end: 20170822
  2. EVEROLIMUS. [Suspect]
     Active Substance: EVEROLIMUS
     Indication: RENAL CELL CARCINOMA
     Route: 048
     Dates: start: 20170621, end: 20170704
  3. LENVATINIB [Suspect]
     Active Substance: LENVATINIB
     Dates: start: 20170712, end: 20170801
  4. LENVATINIB [Suspect]
     Active Substance: LENVATINIB
     Indication: RENAL CELL CARCINOMA
     Route: 048
     Dates: start: 20170621, end: 20170704
  5. EVEROLIMUS. [Suspect]
     Active Substance: EVEROLIMUS
     Route: 048
     Dates: start: 20170712, end: 20170822

REACTIONS (2)
  - Transient ischaemic attack [Recovered/Resolved]
  - Hypertensive encephalopathy [Recovered/Resolved]

NARRATIVE: CASE EVENT DATE: 20170816
